FAERS Safety Report 10952150 (Version 1)
Quarter: 2015Q1

REPORT INFORMATION
  Report Type: Spontaneous
  Country: US (occurrence: None)
  Receive Date: 20150324
  Receipt Date: 20150324
  Transmission Date: 20150721
  Serious: No
  Sender: FDA-Public Use
  Company Number: None

PATIENT
  Age: 62 Year
  Sex: Male

DRUGS (4)
  1. HYDROCO [Concomitant]
  2. METOCLOPRAM [Concomitant]
     Active Substance: METOCLOPRAMIDE
  3. HARVONI [Suspect]
     Active Substance: LEDIPASVIR\SOFOSBUVIR
     Indication: CHRONIC HEPATITIS C
     Route: 048
     Dates: start: 20150226
  4. LIDOCAIN [Concomitant]

REACTIONS (1)
  - Flatulence [None]

NARRATIVE: CASE EVENT DATE: 20150226
